FAERS Safety Report 6344525-0 (Version None)
Quarter: 2009Q3

REPORT INFORMATION
  Report Type: 
  Country: None (occurrence: None)
  Receive Date: 20090908
  Receipt Date: 20090826
  Transmission Date: 20100115
  Serious: Yes (Other)
  Sender: FDA-Public Use
  Company Number: CH-PFIZER INC-2009259710

PATIENT
  Age: 90 Year

DRUGS (10)
  1. DETRUSITOL SR [Suspect]
     Dosage: 4 MG, UNK
     Route: 048
     Dates: start: 20080101
  2. NORVASC [Suspect]
     Indication: ESSENTIAL HYPERTENSION
     Dosage: 5 MG, 1X/DAY
  3. TEMESTA [Suspect]
     Dosage: 0.5 MG, 1X/DAY
     Route: 048
  4. NEXIUM [Suspect]
     Dosage: 40 MG, 1X/DAY
     Route: 048
  5. VOLTAREN [Concomitant]
     Dosage: 50 MG, UNK
     Dates: end: 20090119
  6. DAFALGAN [Concomitant]
     Dosage: 1 G, 3X/DAY
     Dates: start: 20090119
  7. COZAAR [Concomitant]
     Dosage: 50 MG, 1X/DAY
     Dates: start: 20090119
  8. SCHERIPROCT [Concomitant]
     Dosage: 2.3 MG, 2X/DAY
  9. ASPIRIN [Concomitant]
     Dosage: 100 MG, 1X/DAY
  10. LAXOBERON [Concomitant]
     Dosage: 7.5 MG, 1X/DAY
     Dates: start: 20090119

REACTIONS (1)
  - INAPPROPRIATE ANTIDIURETIC HORMONE SECRETION [None]
